FAERS Safety Report 13995551 (Version 2)
Quarter: 2017Q4

REPORT INFORMATION
  Report Type: Spontaneous
  Country: JP (occurrence: JP)
  Receive Date: 20170921
  Receipt Date: 20171011
  Transmission Date: 20180321
  Serious: Yes (Hospitalization)
  Sender: FDA-Public Use
  Company Number: JP-AMGEN-JPNSP2017142438

PATIENT
  Age: 77 Year
  Sex: Male

DRUGS (7)
  1. CARBOPLATIN W/ETOPOSIDE [Concomitant]
     Dosage: 4 COURSES
  2. OXYCONTIN [Concomitant]
     Active Substance: OXYCODONE HYDROCHLORIDE
     Indication: PAIN
     Dosage: 10 MG, QD
     Route: 065
  3. OXYCONTIN [Concomitant]
     Active Substance: OXYCODONE HYDROCHLORIDE
     Dosage: 40 MG, QD
  4. RANMARK [Suspect]
     Active Substance: DENOSUMAB
     Indication: METASTASES TO SPINE
     Dosage: 120 MG, UNK
     Route: 058
  5. RANMARK [Suspect]
     Active Substance: DENOSUMAB
     Indication: PAIN
  6. LOXOPROFEN SODIUM HYDRATE [Suspect]
     Active Substance: LOXOPROFEN SODIUM DIHYDRATE
     Indication: PAIN
     Dosage: 180 MG, QD
     Route: 065
  7. LOXONIN [Suspect]
     Active Substance: LOXOPROFEN SODIUM
     Indication: PAIN
     Dosage: 180 MG, QD
     Route: 065

REACTIONS (3)
  - Constipation [Recovered/Resolved]
  - Pain [Unknown]
  - Nausea [Recovered/Resolved]
